FAERS Safety Report 7002000-4 (Version None)
Quarter: 2010Q3

REPORT INFORMATION
  Report Type: 
  Country: None (occurrence: None)
  Receive Date: 20100920
  Receipt Date: 20100917
  Transmission Date: 20110219
  Serious: Yes (Other)
  Sender: FDA-Public Use
  Company Number: B0672724A

PATIENT
  Sex: Male
  Weight: 69 kg

DRUGS (3)
  1. LAPATINIB [Suspect]
     Indication: GASTRIC CANCER
     Dosage: 1250MG PER DAY
     Route: 048
     Dates: start: 20100722
  2. OXALIPLATIN [Suspect]
     Indication: GASTRIC CANCER
     Dosage: 130MGM2 CYCLIC
     Route: 042
     Dates: start: 20100722
  3. CAPECITABINE [Suspect]
     Indication: GASTRIC CANCER
     Dosage: 1700MGM2 TWICE PER DAY
     Route: 048
     Dates: start: 20100722

REACTIONS (1)
  - THROMBOCYTOPENIA [None]
